FAERS Safety Report 10101474 (Version 3)
Quarter: 2014Q3

REPORT INFORMATION
  Report Type: Spontaneous
  Country: IT (occurrence: None)
  Receive Date: 20140422
  Receipt Date: 20140722
  Transmission Date: 20150326
  Serious: Yes (Hospitalization)
  Sender: FDA-Public Use
  Company Number: AUR-APL-2014-04721

PATIENT
  Age: 74 Year
  Sex: Male
  Weight: 67 kg

DRUGS (8)
  1. RISPERIDONE (RISPERIDONE) [Concomitant]
     Active Substance: RISPERIDONE
  2. SERTRALINE [Concomitant]
     Active Substance: SERTRALINE HYDROCHLORIDE
  3. METFORMIN [Suspect]
     Active Substance: METFORMIN HYDROCHLORIDE
     Indication: DIABETES MELLITUS
     Dosage: (1 DOSAGE FORMS, 1 D), ORAL
     Route: 048
     Dates: start: 20090301, end: 20140301
  4. GLICLAZIDE (GLICLAZIDE) [Concomitant]
     Active Substance: GLICLAZIDE
  5. PIOGLITAZONE HYDROCHLORIDE (PIOGLITAZONE HYDROCHLORIDE) [Concomitant]
     Active Substance: PIOGLITAZONE HYDROCHLORIDE
  6. OLANZAPINE (OLANZAPINE) [Concomitant]
     Active Substance: OLANZAPINE
  7. VILDAGLIPTIN (VILDAGLIPTIN) [Concomitant]
  8. ASPIRINETTA (ACETYLSALICYLIC ACID) TABLET, 100MG [Concomitant]

REACTIONS (6)
  - Hypoglycaemia [None]
  - Sopor [None]
  - Metabolic acidosis [None]
  - Dialysis [None]
  - Hypotension [None]
  - Renal failure acute [None]

NARRATIVE: CASE EVENT DATE: 20140301
